FAERS Safety Report 6885628-1 (Version None)
Quarter: 2010Q3

REPORT INFORMATION
  Report Type: 
  Country: None (occurrence: None)
  Receive Date: 20100729
  Receipt Date: 20080731
  Transmission Date: 20110219
  Serious: No
  Sender: FDA-Public Use
  Company Number: US-PFIZER INC-2008058248

PATIENT
  Sex: Female
  Weight: 49.1 kg

DRUGS (3)
  1. CELEBREX [Suspect]
     Indication: ARTHRITIS
     Route: 048
     Dates: start: 20080710
  2. CELEBREX [Suspect]
     Indication: BACK PAIN
  3. PROPRANOLOL [Concomitant]

REACTIONS (2)
  - DIZZINESS [None]
  - FATIGUE [None]
